FAERS Safety Report 12880204 (Version 6)
Quarter: 2017Q2

REPORT INFORMATION
  Report Type: Report from Study
  Country: JP (occurrence: JP)
  Receive Date: 20161025
  Receipt Date: 20170501
  Transmission Date: 20170830
  Serious: Yes (Hospitalization)
  Sender: FDA-Public Use
  Company Number: PHJP2016JP029548

PATIENT
  Age: 11 Year
  Sex: Male
  Weight: 42.5 kg

DRUGS (8)
  1. PREDONINE [Suspect]
     Active Substance: PREDNISOLONE
     Dosage: 5 MG, UNK
     Route: 048
     Dates: start: 20170218
  2. PREDONINE [Suspect]
     Active Substance: PREDNISOLONE
     Indication: JUVENILE IDIOPATHIC ARTHRITIS
     Dosage: 4 MG, BID
     Route: 048
     Dates: start: 20160522
  3. PREDONINE [Suspect]
     Active Substance: PREDNISOLONE
     Dosage: 6 MG, UNK
     Route: 048
     Dates: start: 20170201
  4. PROGRAF [Suspect]
     Active Substance: TACROLIMUS\TACROLIMUS ANHYDROUS
     Indication: HISTIOCYTIC NECROTISING LYMPHADENITIS
     Dosage: 1 MG, BID
     Route: 048
     Dates: start: 20161222
  5. PREDONINE [Suspect]
     Active Substance: PREDNISOLONE
     Dosage: 7 MG, UNK
     Route: 048
     Dates: start: 20170121
  6. ALENDRONATE SODIUM HYDRATE [Concomitant]
     Active Substance: ALENDRONATE SODIUM
     Indication: OSTEOPOROSIS
     Dosage: 35 MG, QW
     Route: 048
     Dates: start: 20160412, end: 20170311
  7. ACZ885 [Suspect]
     Active Substance: CANAKINUMAB
     Indication: JUVENILE IDIOPATHIC ARTHRITIS
     Dosage: 4 MG/KG, QW4
     Route: 058
     Dates: start: 20160609
  8. PREDONINE [Suspect]
     Active Substance: PREDNISOLONE
     Dosage: 2 MG, BID
     Route: 048
     Dates: start: 20170221

REACTIONS (5)
  - Adrenal insufficiency [Recovered/Resolved]
  - Influenza [Recovered/Resolved]
  - Gastroenteritis [Recovered/Resolved]
  - Adrenal insufficiency [Recovered/Resolved]
  - Histiocytosis haematophagic [Recovered/Resolved]

NARRATIVE: CASE EVENT DATE: 20161015
